FAERS Safety Report 5961535-3 (Version None)
Quarter: 2008Q4

REPORT INFORMATION
  Report Type: 
  Country: None (occurrence: None)
  Receive Date: 20081121
  Receipt Date: 20081117
  Transmission Date: 20090506
  Serious: Yes (Hospitalization, Other)
  Sender: FDA-Public Use
  Company Number: A0756843A

PATIENT
  Age: 38 Year
  Sex: Female

DRUGS (2)
  1. LAMICTAL [Suspect]
     Dosage: 75MG PER DAY
     Dates: start: 20081010, end: 20081105
  2. PAROXETINE HCL [Concomitant]
     Dosage: 20MG PER DAY

REACTIONS (9)
  - HEPATIC ENZYME ABNORMAL [None]
  - OESOPHAGEAL DISORDER [None]
  - ORAL DISORDER [None]
  - RASH [None]
  - SKIN DISORDER [None]
  - SKIN EXFOLIATION [None]
  - SKIN LESION [None]
  - STEVENS-JOHNSON SYNDROME [None]
  - WEIGHT DECREASED [None]
